FAERS Safety Report 8172706-2 (Version None)
Quarter: 2012Q1

REPORT INFORMATION
  Report Type: 
  Country: None (occurrence: None)
  Receive Date: 20120223
  Receipt Date: 20090427
  Transmission Date: 20120608
  Serious: Yes (Life-Threatening, Hospitalization, Disabling)
  Sender: FDA-Public Use
  Company Number: DSA_55112_2012

PATIENT
  Age: 57 Year
  Sex: Female

DRUGS (7)
  1. BENDROFLUMETHIAZIDE (BENDROFLUMETHIAZIDE) [Suspect]
     Indication: HYPERTENSION
     Dosage: (2.5 MG QD ORAL)
     Route: 048
     Dates: start: 20050101, end: 20090205
  2. CITALOPRAM HYDROBROMIDE [Suspect]
     Indication: DEPRESSION
     Dosage: (20 MG QD ORAL)
     Route: 048
     Dates: start: 20090202, end: 20090205
  3. ALTACE [Suspect]
     Indication: HYPERTENSION
     Dosage: (2.5 MG QD ORAL)
     Route: 048
     Dates: start: 20060101, end: 20090205
  4. MAGNESIUM [Concomitant]
  5. GARLIC /01570501/ [Concomitant]
  6. MENOPACE /01548201/ [Concomitant]
  7. METRONIDAZOLE [Suspect]
     Indication: TOOTH DISORDER
     Dosage: (200 MG TID ORAL)
     Route: 048
     Dates: start: 20090202, end: 20090205

REACTIONS (6)
  - OSMOTIC DEMYELINATION SYNDROME [None]
  - FEELING HOT [None]
  - CONVULSION [None]
  - DRUG INTERACTION [None]
  - VOMITING [None]
  - THIRST [None]
